FAERS Safety Report 9284929 (Version 2)
Quarter: 2014Q1

REPORT INFORMATION
  Report Type: Spontaneous
  Country: GB (occurrence: GB)
  Receive Date: 20130513
  Receipt Date: 20140306
  Transmission Date: 20141002
  Serious: Yes (Hospitalization, Other)
  Sender: FDA-Public Use
  Company Number: GB-ACCORD-017498

PATIENT
  Age: 49 Year
  Sex: Female

DRUGS (12)
  1. CLOPIDOGREL [Suspect]
     Indication: PRODUCT USED FOR UNKNOWN INDICATION
     Dosage: 75 MG X 28
     Route: 048
     Dates: end: 20140206
  2. OLANZAPINE [Suspect]
     Indication: PRODUCT USED FOR UNKNOWN INDICATION
     Dates: end: 20140206
  3. FUROSEMIDE [Suspect]
     Indication: PRODUCT USED FOR UNKNOWN INDICATION
     Dosage: 40 MG X 28
     Route: 048
  4. PARACETAMOL [Suspect]
     Indication: PRODUCT USED FOR UNKNOWN INDICATION
     Dosage: 500 MG X 16
     Route: 048
  5. RAMIPRIL [Suspect]
     Indication: PRODUCT USED FOR UNKNOWN INDICATION
     Dosage: 2.5 MG X 56
     Route: 048
     Dates: end: 20140206
  6. BISOPROLOL [Suspect]
     Indication: PRODUCT USED FOR UNKNOWN INDICATION
     Dosage: 10 MG X 56
     Route: 048
     Dates: end: 20140206
  7. IBUPROFEN [Suspect]
     Indication: PRODUCT USED FOR UNKNOWN INDICATION
     Dosage: 200 MG X 24
     Route: 048
  8. FLUOXETINE [Suspect]
     Indication: PRODUCT USED FOR UNKNOWN INDICATION
     Dosage: 20MG X 56
     Route: 048
     Dates: start: 20130124, end: 20140206
  9. ZAPONEX [Suspect]
     Indication: SCHIZOPHRENIA
     Route: 048
     Dates: start: 20041014, end: 20130129
  10. ASPIRIN [Suspect]
     Indication: PRODUCT USED FOR UNKNOWN INDICATION
     Dosage: QUANTITY UNKNOWN
     Route: 048
  11. GAVISCON [Concomitant]
     Indication: DYSPEPSIA
     Route: 048
  12. LANSOPRAZOLE [Concomitant]
     Indication: DYSPEPSIA
     Route: 048

REACTIONS (10)
  - Renal failure acute [Recovered/Resolved]
  - Coma scale abnormal [Unknown]
  - Faecal incontinence [Unknown]
  - Alanine aminotransferase increased [Recovered/Resolved]
  - Agitation [Unknown]
  - Confusional state [Unknown]
  - Hypercholesterolaemia [Not Recovered/Not Resolved]
  - Dysarthria [Unknown]
  - Treatment noncompliance [Recovered/Resolved]
  - Intentional overdose [Unknown]
